FAERS Safety Report 7266404-7 (Version None)
Quarter: 2011Q1

REPORT INFORMATION
  Report Type: 
  Country: None (occurrence: None)
  Receive Date: 20110131
  Receipt Date: 20110124
  Transmission Date: 20110831
  Serious: Yes (Other)
  Sender: FDA-Public Use
  Company Number: GB-PFIZER INC-2011008734

PATIENT
  Age: 63 Year
  Sex: Female

DRUGS (3)
  1. EPANUTIN [Suspect]
     Dosage: 500 MG, ALTERNATE DAY
     Dates: start: 19991101
  2. EPANUTIN [Suspect]
     Dosage: 525 MG, ALTERNATE DAY
     Dates: start: 19991101
  3. ERGOCALCIFEROL [Concomitant]
     Dosage: UNK

REACTIONS (16)
  - HYPOAESTHESIA [None]
  - HYPERTENSION [None]
  - GAIT DISTURBANCE [None]
  - CHEST DISCOMFORT [None]
  - OSTEOPENIA [None]
  - VITAMIN D DEFICIENCY [None]
  - ELECTROCARDIOGRAM QT PROLONGED [None]
  - PAIN [None]
  - OSTEOMALACIA [None]
  - WHEELCHAIR USER [None]
  - BONE DENSITY DECREASED [None]
  - ARRHYTHMIA [None]
  - BALANCE DISORDER [None]
  - MUSCLE SPASMS [None]
  - RENAL OSTEODYSTROPHY [None]
  - DYSPEPSIA [None]
